FAERS Safety Report 18724480 (Version 1)
Quarter: 2021Q1

REPORT INFORMATION
  Report Type: Spontaneous
  Country: US (occurrence: US)
  Receive Date: 20210111
  Receipt Date: 20210111
  Transmission Date: 20210419
  Serious: Yes (Life-Threatening, Hospitalization, Other)
  Sender: FDA-Public Use
  Company Number: None

PATIENT
  Age: 59 Year
  Sex: Male

DRUGS (2)
  1. INSULIN (INSULIN, DETEMIR, HUMAN 100UNIT/ML INJ, FLEXTOUCH,3ML) [Suspect]
     Active Substance: INSULIN DETEMIR
     Indication: DIABETES MELLITUS
     Dosage: ?          OTHER STRENGTH:100 UNIT/ML, 3ML;?
     Route: 048
     Dates: start: 20170815
  2. EMPAGLIFLOZIN (EMPAGLIFLOZIN 10MG TAB) [Suspect]
     Active Substance: EMPAGLIFLOZIN
     Indication: DIABETES MELLITUS
     Route: 048
     Dates: start: 20191129, end: 20200616

REACTIONS (2)
  - Nausea [None]
  - Diabetic ketoacidosis [None]

NARRATIVE: CASE EVENT DATE: 20200616
